FAERS Safety Report 11894084 (Version 1)
Quarter: 2016Q1

REPORT INFORMATION
  Report Type: Spontaneous
  Country: US (occurrence: US)
  Receive Date: 20160107
  Receipt Date: 20160107
  Transmission Date: 20160526
  Serious: No
  Sender: FDA-Public Use
  Company Number: US-ASTRAZENECA-2016SE00154

PATIENT
  Age: 58 Year
  Sex: Female
  Weight: 50.8 kg

DRUGS (2)
  1. IBUPROFEN. [Concomitant]
     Active Substance: IBUPROFEN
     Indication: FALL
     Route: 048
  2. TAGRISSO [Suspect]
     Active Substance: OSIMERTINIB
     Indication: LUNG NEOPLASM MALIGNANT
     Route: 048
     Dates: start: 20151224

REACTIONS (3)
  - Head injury [Unknown]
  - Post-traumatic neck syndrome [Unknown]
  - Fall [Unknown]

NARRATIVE: CASE EVENT DATE: 20151227
